FAERS Safety Report 8146739-6 (Version None)
Quarter: 2012Q1

REPORT INFORMATION
  Report Type: 
  Country: None (occurrence: None)
  Receive Date: 20120217
  Receipt Date: 20110606
  Transmission Date: 20120608
  Serious: No
  Sender: FDA-Public Use
  Company Number: US-ABBOTT-11P-163-0731191-00

PATIENT
  Sex: Female

DRUGS (5)
  1. METFORMIN HCL [Concomitant]
     Indication: POLYCYSTIC OVARIES
  2. FERROUS SULFATE TAB [Concomitant]
     Indication: ANAEMIA
  3. SIMCOR [Suspect]
     Indication: BLOOD FIBRINOGEN INCREASED
  4. ORAL CONTRACEPTIVE NOS [Concomitant]
     Indication: POLYCYSTIC OVARIES
  5. SIMCOR [Suspect]
     Indication: BLOOD CHOLESTEROL INCREASED
     Dosage: 500/20MG DAILY
     Route: 048
     Dates: start: 20110421

REACTIONS (5)
  - ERYTHEMA [None]
  - FLUSHING [None]
  - HEART RATE INCREASED [None]
  - PRURITUS [None]
  - PARAESTHESIA [None]
